FAERS Safety Report 7324105-0 (Version None)
Quarter: 2011Q1

REPORT INFORMATION
  Report Type: 
  Country: None (occurrence: None)
  Receive Date: 20110218
  Receipt Date: 20110210
  Transmission Date: 20110831
  Serious: Yes (Hospitalization)
  Sender: FDA-Public Use
  Company Number: ALA_01727_2011

PATIENT
  Sex: Male

DRUGS (1)
  1. REGLAN [Suspect]
     Indication: PRODUCT USED FOR UNKNOWN INDICATION
     Dosage: (DF)

REACTIONS (4)
  - HYPERTENSION [None]
  - CARDIAC FAILURE [None]
  - MUSCLE TWITCHING [None]
  - ABDOMINAL PAIN [None]
